FAERS Safety Report 11788996 (Version 1)
Quarter: 2015Q4

REPORT INFORMATION
  Report Type: Spontaneous
  Country: NL (occurrence: NL)
  Receive Date: 20151201
  Receipt Date: 20151201
  Transmission Date: 20160305
  Serious: Yes (Hospitalization)
  Sender: FDA-Public Use
  Company Number: PHHY2015NL155467

PATIENT
  Sex: Male

DRUGS (1)
  1. TEGRETOL [Suspect]
     Active Substance: CARBAMAZEPINE
     Indication: GENERALISED TONIC-CLONIC SEIZURE
     Dosage: 200 MG, UNK
     Route: 065

REACTIONS (2)
  - Toxic skin eruption [Recovered/Resolved]
  - Acute prerenal failure [Unknown]

NARRATIVE: CASE EVENT DATE: 201510
